FAERS Safety Report 5758259-4 (Version None)
Quarter: 2008Q2

REPORT INFORMATION
  Report Type: 
  Country: None (occurrence: None)
  Receive Date: 20080604
  Receipt Date: 20080522
  Transmission Date: 20081010
  Serious: Yes (Hospitalization)
  Sender: FDA-Public Use
  Company Number: IN-AMGEN-US278369

PATIENT
  Age: 32 Year
  Sex: Male

DRUGS (2)
  1. ENBREL [Suspect]
     Indication: SPONDYLITIS
     Dosage: 25 MG ONCE
     Route: 058
     Dates: start: 20080403, end: 20080403
  2. ENBREL [Suspect]
     Dosage: 25 MG ONCE
     Route: 058

REACTIONS (2)
  - ACUTE RESPIRATORY DISTRESS SYNDROME [None]
  - PYREXIA [None]
